FAERS Safety Report 10336649 (Version 2)
Quarter: 2014Q3

REPORT INFORMATION
  Report Type: Spontaneous
  Country: US (occurrence: US)
  Receive Date: 20140723
  Receipt Date: 20140807
  Transmission Date: 20150326
  Serious: Yes (Other)
  Sender: FDA-Public Use
  Company Number: US-PFIZER INC-2014201932

PATIENT
  Sex: Female

DRUGS (2)
  1. ESTROBLEND [Suspect]
     Active Substance: DIETARY SUPPLEMENT
     Dosage: UNK
     Dates: start: 2014
  2. DILANTIN [Suspect]
     Active Substance: PHENYTOIN
     Indication: CONVULSION
     Dosage: UNK

REACTIONS (3)
  - Uterine disorder [Unknown]
  - Drug ineffective [Unknown]
  - Drug level decreased [Unknown]

NARRATIVE: CASE EVENT DATE: 2014
